FAERS Safety Report 8788969 (Version 1)
Quarter: 2012Q4

REPORT INFORMATION
  Report Type: 
  Country: US (occurrence: US)
  Receive Date: 20120917
  Receipt Date: 20120917
  Transmission Date: 20130627
  Serious: Yes (Hospitalization)
  Sender: FDA-Public Use
  Company Number: US-MERCK-1209USA005886

PATIENT

DRUGS (13)
  1. SAPHRIS [Suspect]
     Dosage: 5 mg, bid
     Route: 060
  2. ATENOLOL [Concomitant]
  3. CALCIUM CARBONATE [Concomitant]
  4. DEPAKOTE [Concomitant]
  5. DOXAZOSIN MESYLATE [Concomitant]
  6. OMEPRAZOLE [Concomitant]
  7. DOXEPIN HYDROCHLORIDE [Concomitant]
  8. HYDROXYZINE PAMOATE [Concomitant]
  9. LOXAPINE [Concomitant]
  10. METFORMIN [Concomitant]
  11. TRAZODONE HYDROCHLORIDE [Concomitant]
  12. ASPIRIN [Concomitant]
  13. GABAPENTIN [Concomitant]

REACTIONS (3)
  - Nausea [Unknown]
  - Restlessness [Unknown]
  - Dizziness [Unknown]
